FAERS Safety Report 16460307 (Version 1)
Quarter: 2019Q2

REPORT INFORMATION
  Report Type: Spontaneous
  Country: AU (occurrence: AU)
  Receive Date: 20190620
  Receipt Date: 20190620
  Transmission Date: 20190711
  Serious: Yes (Hospitalization, Other)
  Sender: FDA-Public Use
  Company Number: AU-MYLANLABS-2019M1057599

PATIENT
  Age: 63 Year
  Sex: Female

DRUGS (1)
  1. METHOTREXATE. [Suspect]
     Active Substance: METHOTREXATE
     Indication: CUTANEOUS T-CELL LYMPHOMA
     Dosage: HIGH DOSE OF METHOTREXATE
     Route: 065

REACTIONS (6)
  - Toxicity to various agents [Unknown]
  - Pruritus [Recovering/Resolving]
  - Delirium [Unknown]
  - Recall phenomenon [Unknown]
  - Ulcer [Unknown]
  - Agitation [Unknown]
